FAERS Safety Report 24468488 (Version 3)
Quarter: 2024Q4

REPORT INFORMATION
  Report Type: Spontaneous
  Country: US (occurrence: US)
  Receive Date: 20241018
  Receipt Date: 20241118
  Transmission Date: 20250114
  Serious: No
  Sender: PFIZER
  Company Number: US-PFIZER INC-PV202400132155

PATIENT
  Age: 58 Year
  Sex: Male
  Weight: 65.77 kg

DRUGS (2)
  1. TIVDAK [Suspect]
     Active Substance: TISOTUMAB VEDOTIN-TFTV
     Indication: Tongue neoplasm
     Dosage: ONCE EVERY TWO WEEKS
     Route: 042
     Dates: start: 20240201, end: 202405
  2. TIVDAK [Suspect]
     Active Substance: TISOTUMAB VEDOTIN-TFTV
     Indication: Oral neoplasm

REACTIONS (4)
  - Arthralgia [Recovered/Resolved]
  - Pain in extremity [Unknown]
  - Off label use [Unknown]
  - Drug effective for unapproved indication [Unknown]

NARRATIVE: CASE EVENT DATE: 20240101
